FAERS Safety Report 8074209-2 (Version None)
Quarter: 2012Q1

REPORT INFORMATION
  Report Type: 
  Country: None (occurrence: None)
  Receive Date: 20120119
  Receipt Date: 20120105
  Transmission Date: 20120608
  Serious: Yes (Disabling)
  Sender: FDA-Public Use
  Company Number: GB-1189735

PATIENT
  Age: 60 Year
  Sex: Male
  Weight: 90 kg

DRUGS (3)
  1. TRIMETHOPRIM (12/14/2011 TO 12/21/2011) [Concomitant]
  2. CILOXAN [Suspect]
     Dates: start: 20111220, end: 20111222
  3. SIMVASTATIN (08/30/2011 TO CONTINUING) [Concomitant]

REACTIONS (2)
  - SYNCOPE [None]
  - CONVULSION [None]
